FAERS Safety Report 8180934-5 (Version None)
Quarter: 2012Q1

REPORT INFORMATION
  Report Type: 
  Country: None (occurrence: None)
  Receive Date: 20120301
  Receipt Date: 20120301
  Transmission Date: 20120608
  Serious: Yes (Life-Threatening, Disabling)
  Sender: FDA-Public Use
  Company Number: None

PATIENT
  Sex: Female
  Weight: 72.5755 kg

DRUGS (4)
  1. ZOCOR [Suspect]
     Indication: CORONARY ARTERY DISEASE
     Dosage: 20, MG 1 - DAILY : 40, MG
     Dates: start: 20101221
  2. ZOCOR [Suspect]
     Indication: STENT PLACEMENT
     Dosage: 20, MG 1 - DAILY : 40, MG
     Dates: start: 20101221
  3. ZOCOR [Suspect]
     Indication: CORONARY ARTERY DISEASE
     Dosage: 20, MG 1 - DAILY : 40, MG
     Dates: start: 20111112
  4. ZOCOR [Suspect]
     Indication: STENT PLACEMENT
     Dosage: 20, MG 1 - DAILY : 40, MG
     Dates: start: 20111112

REACTIONS (5)
  - ARTHRALGIA [None]
  - ABASIA [None]
  - STENT PLACEMENT [None]
  - PAIN IN EXTREMITY [None]
  - MUSCULAR WEAKNESS [None]
